FAERS Safety Report 6832965-2 (Version None)
Quarter: 2010Q3

REPORT INFORMATION
  Report Type: 
  Country: None (occurrence: None)
  Receive Date: 20100712
  Receipt Date: 20070319
  Transmission Date: 20110219
  Serious: No
  Sender: FDA-Public Use
  Company Number: US-PFIZER INC-2007022073

PATIENT
  Sex: Female
  Weight: 57.15 kg

DRUGS (6)
  1. CHANTIX [Suspect]
     Dates: start: 20070101
  2. GLUCOTROL [Concomitant]
     Indication: DIABETES MELLITUS
  3. GLUCOPHAGE [Concomitant]
     Indication: DIABETES MELLITUS
  4. NEXIUM [Concomitant]
     Indication: ULCER
  5. NEXIUM [Concomitant]
     Indication: GASTROOESOPHAGEAL REFLUX DISEASE
  6. XANAX [Concomitant]
     Indication: NERVOUSNESS

REACTIONS (2)
  - FLATULENCE [None]
  - NAUSEA [None]
